FAERS Safety Report 16958650 (Version 2)
Quarter: 2019Q4

REPORT INFORMATION
  Report Type: Other
  Country: CA (occurrence: CA)
  Receive Date: 20191024
  Receipt Date: 20191101
  Transmission Date: 20200122
  Serious: Yes (Death, Other)
  Sender: FDA-Public Use
  Company Number: CA-INTERCEPT-PM2019001819

PATIENT
  Sex: Female

DRUGS (8)
  1. ADEMPAS [Concomitant]
     Active Substance: RIOCIGUAT
  2. OCALIVA [Suspect]
     Active Substance: OBETICHOLIC ACID
     Indication: PRIMARY BILIARY CHOLANGITIS
     Dosage: 5 MG, QD
     Route: 048
     Dates: start: 20171216
  3. PROFERRIN [Concomitant]
     Active Substance: IRON
  4. OCALIVA [Suspect]
     Active Substance: OBETICHOLIC ACID
     Dosage: 10 MG, QD
     Route: 048
  5. RESTORALAX [Concomitant]
     Active Substance: POLYETHYLENE GLYCOL 3350
  6. OPSUMIT [Concomitant]
     Active Substance: MACITENTAN
  7. URSODIOL. [Concomitant]
     Active Substance: URSODIOL
     Dosage: 250, 2 IN AM, 1 IN PM
  8. HYDROCORTISONE. [Concomitant]
     Active Substance: HYDROCORTISONE

REACTIONS (3)
  - Hepatic failure [Unknown]
  - Scleroderma [Fatal]
  - Renal failure [Unknown]
